FAERS Safety Report 9650746 (Version 1)
Quarter: 2013Q4

REPORT INFORMATION
  Report Type: Spontaneous
  Country: JP (occurrence: JP)
  Receive Date: 20131029
  Receipt Date: 20131029
  Transmission Date: 20140711
  Serious: Yes (Death)
  Sender: FDA-Public Use
  Company Number: JP-AMGEN-JPNSP2013075824

PATIENT
  Age: 65 Year
  Sex: Male

DRUGS (3)
  1. RANMARK [Suspect]
     Indication: METASTASES TO BONE
     Dosage: 120 MG, Q4WK
     Route: 058
     Dates: start: 20130711, end: 20130711
  2. ARGAMATE [Concomitant]
     Dosage: UNK
     Route: 065
  3. LUPRAC [Concomitant]
     Dosage: UNK
     Route: 065

REACTIONS (1)
  - Death [Fatal]
